FAERS Safety Report 9065242 (Version 1)
Quarter: 2013Q1

REPORT INFORMATION
  Report Type: Spontaneous
  Country: IR (occurrence: IR)
  Receive Date: 20130214
  Receipt Date: 20130214
  Transmission Date: 20140127
  Serious: Yes (Other)
  Sender: FDA-Public Use
  Company Number: IR-ACCORD-016365

PATIENT
  Age: 30 Year
  Sex: Male

DRUGS (1)
  1. QUETIAPINE FUMARATE [Suspect]
     Indication: SCHIZOPHRENIA, PARANOID TYPE
     Dosage: RESTART WITH LOW DOSE (25 MG PER DAY, GRADUALLY INCREASED TO 100MG PER DAY)

REACTIONS (2)
  - Priapism [Recovered/Resolved]
  - Tobacco interaction [Unknown]
